FAERS Safety Report 10159011 (Version 1)
Quarter: 2014Q2

REPORT INFORMATION
  Report Type: Spontaneous
  Country: US (occurrence: US)
  Receive Date: 20140508
  Receipt Date: 20140508
  Transmission Date: 20141212
  Serious: No
  Sender: FDA-Public Use
  Company Number: US-BIOGENIDEC-2014BI040108

PATIENT
  Sex: Female

DRUGS (4)
  1. TECFIDERA [Suspect]
     Indication: MULTIPLE SCLEROSIS
     Route: 048
     Dates: start: 20140212
  2. METROPROLOL  SUCCINATE ER [Concomitant]
  3. OXYCODONE HCL [Concomitant]
  4. SIMVASTATIN [Concomitant]

REACTIONS (2)
  - Paraesthesia [Unknown]
  - Nausea [Unknown]
